FAERS Safety Report 10512400 (Version 1)
Quarter: 2014Q4

REPORT INFORMATION
  Report Type: Spontaneous
  Country: ES (occurrence: ES)
  Receive Date: 20141010
  Receipt Date: 20141010
  Transmission Date: 20150528
  Serious: Yes (Hospitalization)
  Sender: FDA-Public Use
  Company Number: ES-009507513-1410ESP004486

PATIENT
  Age: 66 Year
  Sex: Male

DRUGS (9)
  1. TRYPTIZOL [Suspect]
     Active Substance: AMITRIPTYLINE HYDROCHLORIDE
     Indication: DEPRESSION
     Dosage: 50 MG (25 MG)
     Route: 048
     Dates: start: 20130923, end: 20131118
  2. ACYCLOVIR. [Concomitant]
     Active Substance: ACYCLOVIR
     Indication: PROPHYLAXIS
     Dosage: 800 MG 2 IN 1 DAY
     Route: 048
     Dates: start: 20130923
  3. PANTOPRAZOLE SODIUM [Concomitant]
     Active Substance: PANTOPRAZOLE SODIUM
     Indication: PROPHYLAXIS AGAINST GASTROINTESTINAL ULCER
     Dosage: 40 MG, QD
     Route: 048
     Dates: start: 20130923
  4. GABAPENTIN. [Concomitant]
     Active Substance: GABAPENTIN
     Indication: PRODUCT USED FOR UNKNOWN INDICATION
     Dosage: 300 MG, QD
     Route: 048
     Dates: start: 20130923
  5. BROMAZEPAN [Concomitant]
     Indication: INSOMNIA
     Dosage: 1 DF, QD
     Route: 048
     Dates: start: 20130923
  6. MOVICOL [Concomitant]
     Active Substance: POLYETHYLENE GLYCOL 3350\POTASSIUM CHLORIDE\SODIUM BICARBONATE\SODIUM CHLORIDE
     Indication: CONSTIPATION
     Dosage: 1 SUCHET, DIVIDIDED IN 3 ADMINISTRATIONS (3 IN 1 DAY)
     Route: 048
     Dates: start: 20130923
  7. TRIMETOPRIM-SULFA [Concomitant]
     Indication: PROPHYLAXIS
     Dosage: 80/400MG 3 IN 1 WEEKS, MONDAY, WEDNESDAY, FRIDAY
     Route: 048
     Dates: start: 20130923
  8. DIUZINE [Concomitant]
     Indication: PRODUCT USED FOR UNKNOWN INDICATION
     Dosage: 5/50 MG
     Route: 048
     Dates: start: 20130923
  9. HIBOR [Concomitant]
     Active Substance: BEMIPARIN SODIUM
     Indication: DEEP VEIN THROMBOSIS
     Dosage: UNK UNK, QD
     Route: 058
     Dates: start: 20130923

REACTIONS (1)
  - Hepatitis cholestatic [Recovered/Resolved]

NARRATIVE: CASE EVENT DATE: 20131116
